FAERS Safety Report 5654852-8 (Version None)
Quarter: 2008Q1

REPORT INFORMATION
  Report Type: 
  Country: None (occurrence: None)
  Receive Date: 20080307
  Receipt Date: 20070904
  Transmission Date: 20080703
  Serious: No
  Sender: FDA-Public Use
  Company Number: A0669479A

PATIENT
  Age: 71 Year
  Sex: Female

DRUGS (11)
  1. REQUIP [Suspect]
     Indication: RESTLESS LEGS SYNDROME
     Dosage: 2MG PER DAY
     Route: 048
     Dates: start: 20070411, end: 20070808
  2. HYDROCODONE BITARTRATE [Concomitant]
  3. METOPROLOL TARTRATE [Concomitant]
  4. LIPITOR [Concomitant]
  5. LASIX [Concomitant]
  6. CLONIDINE [Concomitant]
  7. FLEXERIL [Concomitant]
  8. PLAVIX [Concomitant]
  9. SINGULAIR [Concomitant]
  10. NEXIUM [Concomitant]
  11. VITAMIN [Concomitant]

REACTIONS (1)
  - HALLUCINATION [None]
